FAERS Safety Report 16310568 (Version 1)
Quarter: 2019Q2

REPORT INFORMATION
  Report Type: Spontaneous
  Country: IT (occurrence: IT)
  Receive Date: 20190514
  Receipt Date: 20190514
  Transmission Date: 20190711
  Serious: Yes (Other)
  Sender: FDA-Public Use
  Company Number: IT-MYLANLABS-2019M1044930

PATIENT
  Age: 36 Year
  Sex: Male
  Weight: 100 kg

DRUGS (7)
  1. NIMESULIDE [Suspect]
     Active Substance: NIMESULIDE
     Indication: PRODUCT USED FOR UNKNOWN INDICATION
     Dosage: DOSAGE FORM: UNSPECIFIED
     Route: 048
     Dates: start: 20181117, end: 20181117
  2. OMEPRAZOLE. [Suspect]
     Active Substance: OMEPRAZOLE
     Indication: PRODUCT USED FOR UNKNOWN INDICATION
     Dosage: DOSAGE FORM: UNSPECIFIED, 6 DOSE UNITS
     Route: 048
     Dates: start: 20181117, end: 20181117
  3. LANSOPRAZOLE. [Suspect]
     Active Substance: LANSOPRAZOLE
     Indication: PRODUCT USED FOR UNKNOWN INDICATION
     Dosage: 390 MILLIGRAM, QD
     Route: 048
     Dates: start: 20181117, end: 20181117
  4. ACTIGRIP GIORNO + NOTTE [Suspect]
     Active Substance: ACETAMINOPHEN\DIPHENHYDRAMINE\PSEUDOEPHEDRINE
     Indication: PRODUCT USED FOR UNKNOWN INDICATION
     Dosage: 4 DOSAGE FORM, QD
     Route: 048
     Dates: start: 20181117, end: 20181117
  5. AVEGGIO [Suspect]
     Active Substance: AMOXICILLIN\CLAVULANATE POTASSIUM
     Indication: PRODUCT USED FOR UNKNOWN INDICATION
     Dosage: 6 DOSAGE FORM, QD
     Route: 048
     Dates: start: 20181117, end: 20181117
  6. TACHIPIRINA [Suspect]
     Active Substance: ACETAMINOPHEN
     Indication: PRODUCT USED FOR UNKNOWN INDICATION
     Dosage: 13000 MILLIGRAM, QD
     Route: 048
     Dates: start: 20181117, end: 20181117
  7. ACTIGRIP GIORNO + NOTTE [Suspect]
     Active Substance: ACETAMINOPHEN\DIPHENHYDRAMINE\PSEUDOEPHEDRINE
     Dosage: 12 UNK
     Route: 048
     Dates: start: 20181117, end: 20181117

REACTIONS (3)
  - Intentional overdose [Unknown]
  - Intentional self-injury [Unknown]
  - Vomiting [Unknown]

NARRATIVE: CASE EVENT DATE: 20181117
